FAERS Safety Report 6566414-9 (Version None)
Quarter: 2010Q1

REPORT INFORMATION
  Report Type: 
  Country: None (occurrence: None)
  Receive Date: 20100202
  Receipt Date: 20100119
  Transmission Date: 20100710
  Serious: Yes (Death, Hospitalization)
  Sender: FDA-Public Use
  Company Number: PHHY2010DE02259

PATIENT
  Sex: Female
  Weight: 102 kg

DRUGS (6)
  1. ALISKIREN ALI+ [Suspect]
     Indication: HYPERTENSION
     Dosage: UNK
     Dates: start: 20081029
  2. BETA BLOCKING AGENTS [Concomitant]
  3. DIURETICS [Concomitant]
  4. NITRATES [Concomitant]
  5. STATIN [Concomitant]
  6. PLATELET AGGREGATION INHIBITORS [Concomitant]

REACTIONS (2)
  - MENINGITIS [None]
  - PYREXIA [None]
